FAERS Safety Report 7390620-7 (Version None)
Quarter: 2011Q2

REPORT INFORMATION
  Report Type: 
  Country: None (occurrence: None)
  Receive Date: 20110404
  Receipt Date: 20110324
  Transmission Date: 20111010
  Serious: Yes (Hospitalization)
  Sender: FDA-Public Use
  Company Number: US-BIOGENIDEC-2011BI010686

PATIENT
  Sex: Female

DRUGS (3)
  1. AVONEX [Suspect]
     Indication: MULTIPLE SCLEROSIS
     Route: 030
     Dates: start: 19990501
  2. AVONEX [Suspect]
     Route: 030
     Dates: start: 20071101, end: 20100315
  3. AVONEX [Suspect]
     Route: 030
     Dates: start: 20100101

REACTIONS (9)
  - CHOLELITHIASIS [None]
  - MAMMOPLASTY [None]
  - PYREXIA [None]
  - MULTIPLE SCLEROSIS RELAPSE [None]
  - GASTRIC ULCER HAEMORRHAGE [None]
  - ABDOMINAL HERNIA [None]
  - GASTRIC ULCER [None]
  - DISEASE RECURRENCE [None]
  - GASTRITIS FUNGAL [None]
